FAERS Safety Report 6272443-5 (Version None)
Quarter: 2009Q3

REPORT INFORMATION
  Report Type: 
  Country: None (occurrence: None)
  Receive Date: 20090717
  Receipt Date: 20090710
  Transmission Date: 20100115
  Serious: Yes (Hospitalization)
  Sender: FDA-Public Use
  Company Number: US-SANOFI-SYNTHELABO-A03200903017

PATIENT
  Age: 55 Year
  Sex: Male
  Weight: 79.82 kg

DRUGS (13)
  1. LABETOLOL [Concomitant]
     Indication: DRUG USE FOR UNKNOWN INDICATION
     Route: 065
  2. LISINOPRIL [Concomitant]
     Indication: DRUG USE FOR UNKNOWN INDICATION
     Route: 065
  3. METOPROLOL TARTRATE [Concomitant]
     Indication: DRUG USE FOR UNKNOWN INDICATION
     Route: 065
  4. PROCARDIA [Concomitant]
     Indication: DRUG USE FOR UNKNOWN INDICATION
     Route: 065
  5. NEXIUM [Concomitant]
     Indication: DRUG USE FOR UNKNOWN INDICATION
     Route: 065
  6. LIPITOR [Concomitant]
     Indication: DRUG USE FOR UNKNOWN INDICATION
     Route: 065
  7. NORVASC [Concomitant]
     Indication: DRUG USE FOR UNKNOWN INDICATION
     Route: 065
  8. IMDUR [Concomitant]
     Indication: DRUG USE FOR UNKNOWN INDICATION
     Route: 065
  9. SLOW FE IRON [Concomitant]
     Indication: DRUG USE FOR UNKNOWN INDICATION
     Route: 065
  10. TEKTURNA [Concomitant]
     Indication: DRUG USE FOR UNKNOWN INDICATION
     Route: 065
  11. TENORMIN [Concomitant]
     Indication: DRUG USE FOR UNKNOWN INDICATION
     Route: 048
  12. PLAVIX [Suspect]
     Indication: STENT PLACEMENT
     Route: 048
     Dates: start: 20080801, end: 20090526
  13. PLAVIX [Suspect]
     Route: 048
     Dates: start: 20090623

REACTIONS (5)
  - ANAEMIA [None]
  - BLOOD POTASSIUM INCREASED [None]
  - BLOOD PRESSURE INCREASED [None]
  - POST PROCEDURAL HAEMORRHAGE [None]
  - PROTEINURIA [None]
